FAERS Safety Report 4677248-4 (Version None)
Quarter: 2005Q2

REPORT INFORMATION
  Report Type: 
  Country: None (occurrence: None)
  Receive Date: 20050526
  Receipt Date: 20050509
  Transmission Date: 20051028
  Serious: Yes (Disabling)
  Sender: FDA-Public Use
  Company Number: 200504170

PATIENT
  Age: 41 Year
  Sex: Male
  Weight: 137 kg

DRUGS (18)
  1. BOTOX PURIFIED NEUROTOXIN COMPLEX [Suspect]
     Indication: MUSCLE SPASTICITY
     Dosage: 400 UNITS ONCE IM
     Route: 030
     Dates: start: 20050421, end: 20050421
  2. BISACODYL [Concomitant]
  3. CALCIUM GLUCONATE [Concomitant]
  4. DALTEPARIN [Concomitant]
  5. DANTROLENE [Concomitant]
  6. DIAZEPAM [Concomitant]
  7. FERROUS SULFATE [Concomitant]
  8. MILK OF MAGNESIA [Concomitant]
  9. MULTIVITMAINS [Concomitant]
  10. PAROXETINE HCL [Concomitant]
  11. RISPERIDONE [Concomitant]
  12. TACOZIN [Concomitant]
  13. VIT C TAB [Concomitant]
  14. VITAMIN D [Concomitant]
  15. ACETAMINOPHEN [Concomitant]
  16. DIMENHYDRINATE [Concomitant]
  17. MORPHINE [Concomitant]
  18. PROCHLORPERAZINE [Concomitant]

REACTIONS (2)
  - CONDITION AGGRAVATED [None]
  - MUSCLE CONTRACTURE [None]
